FAERS Safety Report 14028136 (Version 3)
Quarter: 2025Q2

REPORT INFORMATION
  Report Type: Spontaneous
  Country: IR (occurrence: IR)
  Receive Date: 20171002
  Receipt Date: 20250613
  Transmission Date: 20250716
  Serious: Yes (Hospitalization, Other)
  Sender: ACCORD
  Company Number: IR-ACCORD-059463

PATIENT
  Age: 68 Year
  Sex: Female

DRUGS (6)
  1. METHOTREXATE [Suspect]
     Active Substance: METHOTREXATE
  2. ASPIRIN [Concomitant]
     Active Substance: ASPIRIN
  3. CARVEDILOL [Concomitant]
     Active Substance: CARVEDILOL
  4. LEVOCARNITINE [Concomitant]
     Active Substance: LEVOCARNITINE
  5. LOSARTAN [Concomitant]
     Active Substance: LOSARTAN
  6. TRIAMTERENE [Concomitant]
     Active Substance: TRIAMTERENE

REACTIONS (8)
  - Medication error [Unknown]
  - Accidental poisoning [Unknown]
  - Mouth ulceration [Recovering/Resolving]
  - Paraesthesia [Recovering/Resolving]
  - Hypokinesia [Recovering/Resolving]
  - Asthenia [Recovering/Resolving]
  - White blood cell count decreased [Recovering/Resolving]
  - Platelet count decreased [Recovering/Resolving]
